FAERS Safety Report 16089980 (Version 1)
Quarter: 2019Q1

REPORT INFORMATION
  Report Type: Spontaneous
  Country: US (occurrence: US)
  Receive Date: 20190319
  Receipt Date: 20190319
  Transmission Date: 20190418
  Serious: No
  Sender: FDA-Public Use
  Company Number: US-SA-2019SA070696

PATIENT
  Age: 33 Year
  Sex: Female

DRUGS (1)
  1. ADMELOG [Suspect]
     Active Substance: INSULIN LISPRO
     Indication: TYPE 2 DIABETES MELLITUS
     Dosage: 25 UNITS A BREAKFAST, 25 UNITS AT LUNCH, AND 30 UNITS AT DINNER
     Route: 065
     Dates: start: 20190219

REACTIONS (1)
  - Device operational issue [Unknown]
